FAERS Safety Report 4824704-1 (Version None)
Quarter: 2005Q4

REPORT INFORMATION
  Report Type: 
  Country: None (occurrence: None)
  Receive Date: 20051108
  Receipt Date: 20051024
  Transmission Date: 20060501
  Serious: Yes (Death)
  Sender: FDA-Public Use
  Company Number: GBS051018869

PATIENT
  Age: 63 Year
  Sex: Male

DRUGS (13)
  1. HUMALOG [Suspect]
     Dosage: 100 IU/ML
  2. HUMULIN N [Suspect]
     Dosage: 100 U/ML
  3. HUMULIN 70/30 [Suspect]
     Dosage: 100 IU
  4. SPIRIVA [Concomitant]
  5. BUMETANIDE [Concomitant]
  6. FOSAMAX [Concomitant]
  7. LISINOPRIL [Concomitant]
  8. MONTELUKAST [Concomitant]
  9. NYSTATIN [Concomitant]
  10. ACETAMINOPHEN [Concomitant]
  11. SALBUTAMOL [Concomitant]
  12. SERETIDE [Concomitant]
  13. TRAMADOL HCL [Concomitant]

REACTIONS (1)
  - LOBAR PNEUMONIA [None]
